FAERS Safety Report 4765697-5 (Version None)
Quarter: 2005Q3

REPORT INFORMATION
  Report Type: 
  Country: None (occurrence: None)
  Receive Date: 20050912
  Receipt Date: 20050831
  Transmission Date: 20060218
  Serious: Yes (Hospitalization)
  Sender: FDA-Public Use
  Company Number: FR-BRISTOL-MYERS SQUIBB COMPANY-13099163

PATIENT
  Age: 58 Year
  Sex: Female

DRUGS (4)
  1. ELISOR TABS 20 MG [Suspect]
     Route: 048
     Dates: start: 20041010, end: 20041207
  2. PLAVIX [Suspect]
     Indication: ACUTE MYOCARDIAL INFARCTION
     Dates: start: 20041010, end: 20041207
  3. KARDEGIC [Concomitant]
     Dates: start: 20041010, end: 20041207
  4. OMEPRAZOLE [Concomitant]
     Dates: start: 20041010, end: 20041207

REACTIONS (2)
  - CARDIAC DISORDER [None]
  - HEPATITIS TOXIC [None]
